FAERS Safety Report 22101932 (Version 1)
Quarter: 2023Q1

REPORT INFORMATION
  Report Type: Spontaneous
  Country: US (occurrence: US)
  Receive Date: 20230316
  Receipt Date: 20230316
  Transmission Date: 20230417
  Serious: Yes (Hospitalization, Other)
  Sender: FDA-Public Use
  Company Number: US-ABBVIE-4342189

PATIENT

DRUGS (1)
  1. HUMIRA [Suspect]
     Active Substance: ADALIMUMAB
     Indication: Product used for unknown indication
     Route: 058

REACTIONS (6)
  - Embolism venous [Unknown]
  - Asthma [Unknown]
  - Panic attack [Unknown]
  - Hospitalisation [Unknown]
  - Blindness transient [Unknown]
  - Thrombosis [Unknown]
